FAERS Safety Report 8142265-9 (Version None)
Quarter: 2012Q1

REPORT INFORMATION
  Report Type: 
  Country: None (occurrence: None)
  Receive Date: 20120103
  Receipt Date: 20110830
  Transmission Date: 20120608
  Serious: No
  Sender: FDA-Public Use
  Company Number: AE-2011-001207

PATIENT
  Sex: Male

DRUGS (4)
  1. INCIVEK [Suspect]
  2. PROCRIT [Concomitant]
  3. RIBAVIRIN [Concomitant]
  4. INTERFERON ALFA-2A (INTERFERON ALFA-2A) [Concomitant]

REACTIONS (1)
  - HAEMOGLOBIN DECREASED [None]
